FAERS Safety Report 5700726-3 (Version None)
Quarter: 2008Q2

REPORT INFORMATION
  Report Type: 
  Country: None (occurrence: None)
  Receive Date: 20080410
  Receipt Date: 20080121
  Transmission Date: 20081010
  Serious: No
  Sender: FDA-Public Use
  Company Number: A0706112A

PATIENT
  Age: 62 Year
  Sex: Female

DRUGS (3)
  1. TYKERB [Suspect]
     Dosage: 2TAB THREE TIMES PER DAY
     Route: 048
     Dates: start: 20071201
  2. TRICOR [Concomitant]
  3. ACTOS [Concomitant]

REACTIONS (2)
  - DIARRHOEA [None]
  - WEIGHT DECREASED [None]
